FAERS Safety Report 5843298-5 (Version None)
Quarter: 2008Q3

REPORT INFORMATION
  Report Type: 
  Country: None (occurrence: None)
  Receive Date: 20080813
  Receipt Date: 20080617
  Transmission Date: 20090109
  Serious: No
  Sender: FDA-Public Use
  Company Number: US-BAYER-200812768BCC

PATIENT
  Age: 91 Year
  Sex: Female
  Weight: 55 kg

DRUGS (7)
  1. ALEVE [Suspect]
     Indication: ARTHRITIS
     Dosage: TOTAL DAILY DOSE: 220 MG  UNIT DOSE: 220 MG
     Route: 048
     Dates: start: 20080601
  2. AMBIEN [Concomitant]
  3. CELEBREX [Concomitant]
  4. CELEXA [Concomitant]
  5. SYNTHROID [Concomitant]
  6. PREDNISONE TAB [Concomitant]
  7. EXCEDRIN (MIGRAINE) [Concomitant]

REACTIONS (2)
  - DIZZINESS [None]
  - HEADACHE [None]
